FAERS Safety Report 6397310-8 (Version None)
Quarter: 2009Q4

REPORT INFORMATION
  Report Type: 
  Country: None (occurrence: None)
  Receive Date: 20091012
  Receipt Date: 20091006
  Transmission Date: 20100525
  Serious: Yes (Other)
  Sender: FDA-Public Use
  Company Number: B0597433A

PATIENT
  Sex: Female
  Weight: 90 kg

DRUGS (1)
  1. ALLI [Suspect]
     Route: 065
     Dates: start: 20090501

REACTIONS (1)
  - HYPERTHYROIDISM [None]
